FAERS Safety Report 8936842 (Version 1)
Quarter: 2012Q4

REPORT INFORMATION
  Report Type: 
  Country: US (occurrence: US)
  Receive Date: 20121130
  Receipt Date: 20121130
  Transmission Date: 20130627
  Serious: No
  Sender: FDA-Public Use
  Company Number: US-009507513-2012SP024045

PATIENT
  Age: 48 Year
  Sex: Male

DRUGS (2)
  1. CLARITYN ALLERGY [Suspect]
     Indication: HYPERSENSITIVITY
     Dosage: 10 mg, QD
     Route: 048
  2. CLARITYN ALLERGY [Suspect]
     Dosage: 20 mg, ONCE
     Route: 048
     Dates: start: 20120429

REACTIONS (1)
  - Overdose [Unknown]
